FAERS Safety Report 4822797-9 (Version None)
Quarter: 2005Q4

REPORT INFORMATION
  Report Type: 
  Country: None (occurrence: None)
  Receive Date: 20051108
  Receipt Date: 20050721
  Transmission Date: 20060501
  Serious: Yes (Other)
  Sender: FDA-Public Use
  Company Number: US-ROCHE-411826

PATIENT
  Age: 48 Year
  Sex: Female
  Weight: 71.2 kg

DRUGS (5)
  1. PEGASYS [Suspect]
     Dosage: COMBINATION THERAPY.
     Route: 058
     Dates: start: 20030826, end: 20040315
  2. PEGASYS [Suspect]
     Dosage: COMBINATION THERAPY.
     Route: 058
     Dates: end: 20040826
  3. COPEGUS [Suspect]
     Dosage: COMBINATION THERAPY.
     Route: 048
     Dates: start: 20030826, end: 20040315
  4. COPEGUS [Suspect]
     Dosage: NOT COMBINATION THERAPY, RIBAVIRIN ONLY.
     Route: 048
     Dates: start: 20040315, end: 20040415
  5. COPEGUS [Suspect]
     Dosage: COMBINATION THERAPY.
     Route: 048
     Dates: end: 20040826

REACTIONS (2)
  - CONVULSION [None]
  - VIRAL LOAD INCREASED [None]
